FAERS Safety Report 5858932-3 (Version None)
Quarter: 2008Q3

REPORT INFORMATION
  Report Type: 
  Country: None (occurrence: None)
  Receive Date: 20080825
  Receipt Date: 20080808
  Transmission Date: 20090109
  Serious: No
  Sender: FDA-Public Use
  Company Number: 8035860

PATIENT
  Age: 32 Year
  Sex: Male
  Weight: 33.63 kg

DRUGS (7)
  1. KEPPRA [Suspect]
     Dosage: 250 MG 3/D PO
     Route: 048
     Dates: start: 20071111, end: 20080701
  2. KEPPRA [Suspect]
     Dosage: 750 MG 2/D
     Dates: start: 20080701
  3. TOPAMAX [Concomitant]
  4. CLARITIN /00917501/ [Concomitant]
  5. NEXIUM [Concomitant]
  6. DULCOLAX /00061602/ [Concomitant]
  7. DAILY MULTIVITAMIN [Concomitant]

REACTIONS (2)
  - SOMNOLENCE [None]
  - WEIGHT DECREASED [None]
